FAERS Safety Report 5519573-0 (Version None)
Quarter: 2007Q4

REPORT INFORMATION
  Report Type: 
  Country: None (occurrence: None)
  Receive Date: 20071116
  Receipt Date: 20071108
  Transmission Date: 20080405
  Serious: Yes (Hospitalization)
  Sender: FDA-Public Use
  Company Number: AR-BRISTOL-MYERS SQUIBB COMPANY-13976535

PATIENT
  Age: 56 Year
  Sex: Female

DRUGS (8)
  1. ABATACEPT [Suspect]
     Indication: RHEUMATOID ARTHRITIS
     Dosage: INITIATED ON 28-MAY-02 TO 09-JAN-07 750 MG IV 56 CYCLES
     Route: 042
     Dates: start: 20070306
  2. METHOTREXATE [Concomitant]
     Dates: start: 20031223
  3. BETAMETHASONE [Concomitant]
     Dates: start: 20070622
  4. ASPIRIN [Concomitant]
     Dates: start: 20031226
  5. DICLOFENAC SODIUM [Concomitant]
     Dates: start: 20040316
  6. AMITRIPTYLINE [Concomitant]
     Dates: start: 20010531
  7. FOLIC ACID [Concomitant]
     Dates: start: 20010531
  8. RANITIDINE [Concomitant]
     Dates: start: 20060614

REACTIONS (2)
  - ABSCESS [None]
  - UMBILICAL HERNIA [None]
